FAERS Safety Report 9994662 (Version 1)
Quarter: 2014Q1

REPORT INFORMATION
  Report Type: Spontaneous
  Country: FR (occurrence: FR)
  Receive Date: 20140311
  Receipt Date: 20140311
  Transmission Date: 20141002
  Serious: Yes (Other)
  Sender: FDA-Public Use
  Company Number: FR-009507513-1403FRA000458

PATIENT
  Age: 48 Year
  Sex: Male
  Weight: 108 kg

DRUGS (7)
  1. VICTRELIS [Suspect]
     Indication: HEPATITIS C
     Dosage: 800 MG, TID
     Route: 048
     Dates: start: 20110516, end: 20120516
  2. PEGINTERFERON ALFA-2B [Suspect]
     Indication: HEPATITIS C
     Dosage: 150 MICROGRAM, QW
     Route: 058
     Dates: start: 20110414, end: 20120316
  3. RIBAVIRIN [Suspect]
     Indication: HEPATITIS C
     Dosage: 600 MG, BID
     Route: 048
     Dates: start: 20110414, end: 20120316
  4. METHADONE HYDROCHLORIDE [Concomitant]
     Dosage: 70 MG, QD
     Dates: start: 2008
  5. SEROPRAM [Concomitant]
     Indication: SLEEP DISORDER
     Dosage: 20 MG, QD
     Dates: start: 20110805, end: 20120119
  6. MEPRONIZINE [Concomitant]
     Indication: SLEEP DISORDER
     Dosage: 1 DF, QD
     Dates: start: 20110805, end: 20120119
  7. XANAX [Concomitant]
     Indication: ANXIETY
     Dosage: UNK
     Dates: start: 20120217

REACTIONS (1)
  - Hepatocellular carcinoma [Recovered/Resolved]
